FAERS Safety Report 20662557 (Version 2)
Quarter: 2022Q2

REPORT INFORMATION
  Report Type: Spontaneous
  Country: IT (occurrence: IT)
  Receive Date: 20220401
  Receipt Date: 20220412
  Transmission Date: 20220721
  Serious: Yes (Hospitalization)
  Sender: FDA-Public Use
  Company Number: IT-MINISAL02-855339

PATIENT
  Age: 84 Year
  Sex: Female
  Weight: 49 kg

DRUGS (2)
  1. HYDROCHLOROTHIAZIDE [Suspect]
     Active Substance: HYDROCHLOROTHIAZIDE
     Indication: Hypertension
     Dosage: 25 MILLIGRAM, ONCE A DAY
     Route: 065
     Dates: start: 20220101, end: 20220310
  2. RIFAMPIN [Concomitant]
     Active Substance: RIFAMPIN
     Indication: Osteomyelitis
     Dosage: UNK
     Route: 065
     Dates: start: 20220228, end: 20220310

REACTIONS (4)
  - Asthenia [Recovered/Resolved]
  - Headache [Recovered/Resolved]
  - Hyponatraemia [Recovered/Resolved]
  - Vertigo [Recovered/Resolved]

NARRATIVE: CASE EVENT DATE: 20220310
